FAERS Safety Report 13548320 (Version 1)
Quarter: 2017Q2

REPORT INFORMATION
  Report Type: Spontaneous
  Country: US (occurrence: US)
  Receive Date: 20170516
  Receipt Date: 20170516
  Transmission Date: 20170830
  Serious: No
  Sender: FDA-Public Use
  Company Number: US-JNJFOC-20170322051

PATIENT
  Age: 41 Year
  Sex: Female
  Weight: 58.97 kg

DRUGS (3)
  1. PROZAC [Concomitant]
     Active Substance: FLUOXETINE HYDROCHLORIDE
     Indication: PRODUCT USED FOR UNKNOWN INDICATION
     Route: 065
  2. WOMENS ROGAINE UNSCENTED [Suspect]
     Active Substance: MINOXIDIL
     Route: 061
  3. WOMENS ROGAINE UNSCENTED [Suspect]
     Active Substance: MINOXIDIL
     Indication: ALOPECIA
     Dosage: MORE THAN A HALF A CAPFUL
     Route: 061

REACTIONS (4)
  - Alopecia [Recovering/Resolving]
  - Overdose [Recovering/Resolving]
  - Product formulation issue [Unknown]
  - Product use in unapproved indication [Recovering/Resolving]
